FAERS Safety Report 18923334 (Version 3)
Quarter: 2021Q2

REPORT INFORMATION
  Report Type: Spontaneous
  Country: US (occurrence: US)
  Receive Date: 20210222
  Receipt Date: 20210413
  Transmission Date: 20210717
  Serious: Yes (Hospitalization)
  Sender: FDA-Public Use
  Company Number: US-BRAINTREE LABORATORIES, INC.-2021BTE00080

PATIENT
  Age: 54 Year
  Sex: Female

DRUGS (1)
  1. SUPREP BOWEL PREP [Suspect]
     Active Substance: MAGNESIUM SULFATE\POTASSIUM SULFATE\SODIUM SULFATE
     Indication: COLONOSCOPY
     Dosage: 1 X 6 OZ. BOTTLE, 1X
     Route: 048
     Dates: start: 20200607, end: 20200607

REACTIONS (3)
  - Mallory-Weiss syndrome [Recovered/Resolved]
  - Nausea [Recovered/Resolved]
  - Haematemesis [Recovered/Resolved]

NARRATIVE: CASE EVENT DATE: 20200607
